FAERS Safety Report 4687075-X (Version None)
Quarter: 2005Q2

REPORT INFORMATION
  Report Type: 
  Country: None (occurrence: None)
  Receive Date: 20050607
  Receipt Date: 20050519
  Transmission Date: 20051028
  Serious: Yes (Hospitalization)
  Sender: FDA-Public Use
  Company Number: US_0409105409

PATIENT
  Age: 38 Year
  Sex: Male
  Weight: 139 kg

DRUGS (26)
  1. ZYPREXA [Suspect]
     Indication: INSOMNIA
     Dosage: 10 MG DAY
     Dates: start: 20020101, end: 20020729
  2. 12MG/50MG OLANZIPINE/FLUOXETINE CAPSULE [Concomitant]
  3. CELEXA [Concomitant]
  4. ANAFRANIL [Concomitant]
  5. LOTREL [Concomitant]
  6. PREDNISOLONE [Concomitant]
  7. PREDNISONE [Concomitant]
  8. HYDROCHLOROTHIAZIDE [Concomitant]
  9. VIAGRA [Concomitant]
  10. DARVOCET-N 100 [Concomitant]
  11. ASPIRIN [Concomitant]
  12. ZYRTEC [Concomitant]
  13. NASONEX [Concomitant]
  14. ALLEGRA [Concomitant]
  15. DESLORATADINE [Concomitant]
  16. RABEPRAZOLE SODIUM [Concomitant]
  17. NITROGLYCERIN [Concomitant]
  18. TRICOR [Concomitant]
  19. ZITHROMAX [Concomitant]
  20. AUGMENTIN '125' [Concomitant]
  21. AMOXICILLIN [Concomitant]
  22. CLOBETASOL [Concomitant]
  23. MEPERIDINE [Concomitant]
  24. CLARITIN [Concomitant]
  25. ACTOS [Concomitant]
  26. NAPROXEN SODIUM [Concomitant]

REACTIONS (22)
  - ABDOMINAL PAIN [None]
  - APPENDICECTOMY [None]
  - BACK PAIN [None]
  - BLOOD CHOLESTEROL ABNORMAL [None]
  - BLOOD CHOLESTEROL INCREASED [None]
  - BLOOD TRIGLYCERIDES INCREASED [None]
  - CELLULITIS [None]
  - DIABETES MELLITUS NON-INSULIN-DEPENDENT [None]
  - ERECTILE DYSFUNCTION [None]
  - GASTROOESOPHAGEAL REFLUX DISEASE [None]
  - HEADACHE [None]
  - HYPOAESTHESIA [None]
  - JOINT SPRAIN [None]
  - LYMPHADENITIS [None]
  - MYOCARDIAL INFARCTION [None]
  - OEDEMA PERIPHERAL [None]
  - PAIN IN EXTREMITY [None]
  - QRS AXIS ABNORMAL [None]
  - SINUS DISORDER [None]
  - SLEEP APNOEA SYNDROME [None]
  - SLEEP DISORDER [None]
  - WEIGHT INCREASED [None]
